FAERS Safety Report 4607414-5 (Version None)
Quarter: 2005Q1

REPORT INFORMATION
  Report Type: 
  Country: None (occurrence: None)
  Receive Date: 20050309
  Receipt Date: 20050221
  Transmission Date: 20050727
  Serious: Yes (Death)
  Sender: FDA-Public Use
  Company Number: 10373

PATIENT

DRUGS (1)
  1. METHOTREXATE [Suspect]
     Indication: RHEUMATOID ARTHRITIS
     Dosage: 12.5 MG WEEKLY UNK
     Route: 064

REACTIONS (13)
  - BRACHYCEPHALY [None]
  - CLEFT UVULA [None]
  - DRUG EXPOSURE DURING PREGNANCY [None]
  - FOETAL GROWTH RETARDATION [None]
  - HEMIVERTEBRA [None]
  - KYPHOSIS [None]
  - LOWER RESPIRATORY TRACT INFECTION [None]
  - MULTIPLE CARDIAC DEFECTS [None]
  - NEONATAL DISORDER [None]
  - NEONATAL INFECTION [None]
  - PREMATURE BABY [None]
  - RETROGNATHIA [None]
  - SYNDACTYLY [None]
